FAERS Safety Report 8234606-9 (Version None)
Quarter: 2012Q1

REPORT INFORMATION
  Report Type: 
  Country: None (occurrence: None)
  Receive Date: 20120322
  Receipt Date: 20120308
  Transmission Date: 20120608
  Serious: Yes (Other)
  Sender: FDA-Public Use
  Company Number: 2012SP013386

PATIENT
  Age: 81 Year
  Sex: Male
  Weight: 51.2 kg

DRUGS (4)
  1. TEMODAL [Suspect]
     Indication: GLIOBLASTOMA MULTIFORME
     Dosage: 75 MG/M2;QD;INDRP
     Dates: start: 20110621
  2. SULFAMETHOXAZOLE AND TRIMETHOPRIM [Concomitant]
  3. MOTILIUM [Concomitant]
  4. LANSOPRAZOLE [Concomitant]

REACTIONS (1)
  - TACHYCARDIA [None]
